FAERS Safety Report 23232742 (Version 1)
Quarter: 2023Q4

REPORT INFORMATION
  Report Type: Spontaneous
  Country: FR (occurrence: FR)
  Receive Date: 20231128
  Receipt Date: 20231128
  Transmission Date: 20240109
  Serious: Yes (Other)
  Sender: FDA-Public Use
  Company Number: None

PATIENT
  Age: 72 Year
  Sex: Female

DRUGS (1)
  1. PROLIA [Suspect]
     Active Substance: DENOSUMAB
     Indication: Osteoporosis
     Dosage: JANUARY AND JULY
     Route: 058
     Dates: start: 20200615

REACTIONS (2)
  - Uveitis [Not Recovered/Not Resolved]
  - Ocular lymphoma [Not Recovered/Not Resolved]

NARRATIVE: CASE EVENT DATE: 20221201
